FAERS Safety Report 7430562-1 (Version None)
Quarter: 2011Q2

REPORT INFORMATION
  Report Type: 
  Country: None (occurrence: None)
  Receive Date: 20110421
  Receipt Date: 20100427
  Transmission Date: 20111010
  Serious: No
  Sender: FDA-Public Use
  Company Number: US-ASTRAZENECA-2010SE19070

PATIENT
  Age: 674 Month
  Sex: Female
  Weight: 72.6 kg

DRUGS (6)
  1. TOPROL-XL [Suspect]
     Route: 048
     Dates: start: 20100316, end: 20100319
  2. CRESTOR [Suspect]
     Route: 048
     Dates: start: 20100316, end: 20100316
  3. PLAVIX [Suspect]
     Route: 048
     Dates: start: 20100331
  4. ASPIRIN [Concomitant]
  5. ESTRADIOL [Concomitant]
  6. PLAVIX [Suspect]
     Indication: STENT PLACEMENT
     Route: 048
     Dates: start: 20100316, end: 20100322

REACTIONS (3)
  - RASH MACULAR [None]
  - HYPERSENSITIVITY [None]
  - DYSPNOEA [None]
